FAERS Safety Report 17391674 (Version 2)
Quarter: 2020Q2

REPORT INFORMATION
  Report Type: Spontaneous
  Country: US (occurrence: US)
  Receive Date: 20200207
  Receipt Date: 20200520
  Transmission Date: 20200713
  Serious: Yes (Other)
  Sender: FDA-Public Use
  Company Number: US-SUN PHARMACEUTICAL INDUSTRIES LTD-2020R1-235627

PATIENT
  Sex: Female

DRUGS (1)
  1. CEQUA [Suspect]
     Active Substance: CYCLOSPORINE
     Indication: DRY EYE
     Dosage: 1 DROP, BID IN EACH EYE
     Route: 065
     Dates: start: 20191230

REACTIONS (4)
  - Eye pruritus [Unknown]
  - Eye infection [Unknown]
  - Eyelid margin crusting [Unknown]
  - Eye inflammation [Unknown]
